FAERS Safety Report 9228949 (Version 2)
Quarter: 2013Q2

REPORT INFORMATION
  Report Type: Spontaneous
  Country: US (occurrence: US)
  Receive Date: 20130412
  Receipt Date: 20130425
  Transmission Date: 20140414
  Serious: Yes (Hospitalization, Other)
  Sender: FDA-Public Use
  Company Number: US-ABBOTT-13P-163-1073704-00

PATIENT
  Sex: Male
  Weight: 59.02 kg

DRUGS (5)
  1. CREON 24 [Suspect]
     Indication: PANCREATITIS CHRONIC
     Dosage: 15 MINUTES BEFORE MEALS
     Dates: start: 20130103
  2. AMOXICILLIN [Suspect]
     Indication: PROCEDURAL COMPLICATION
     Dates: start: 2013, end: 2013
  3. PLAQUENIL [Concomitant]
     Indication: RHEUMATOID ARTHRITIS
  4. METHOTREXATE [Concomitant]
     Indication: RHEUMATOID ARTHRITIS
  5. LISINOPRIL [Concomitant]
     Indication: HYPERTENSION

REACTIONS (7)
  - Pancreatic pseudocyst [Recovered/Resolved]
  - Pancreatic pseudocyst [Recovering/Resolving]
  - Pancreatolithiasis [Recovering/Resolving]
  - Clostridium difficile colitis [Recovering/Resolving]
  - Diarrhoea [Recovering/Resolving]
  - Procedural complication [Recovered/Resolved]
  - Drug administration error [Recovered/Resolved]
